FAERS Safety Report 7489309-5 (Version None)
Quarter: 2011Q2

REPORT INFORMATION
  Report Type: 
  Country: None (occurrence: None)
  Receive Date: 20110518
  Receipt Date: 20110509
  Transmission Date: 20111010
  Serious: Yes (Life-Threatening)
  Sender: FDA-Public Use
  Company Number: IT-ALLERGAN-1106405US

PATIENT
  Sex: Female

DRUGS (1)
  1. BOTULINUM TOXIN TYPE A [Suspect]
     Indication: HYPERHIDROSIS
     Dosage: UNK

REACTIONS (5)
  - SENSORY DISTURBANCE [None]
  - MYDRIASIS [None]
  - DIZZINESS [None]
  - VISUAL IMPAIRMENT [None]
  - FATIGUE [None]
